FAERS Safety Report 18237766 (Version 3)
Quarter: 2020Q4

REPORT INFORMATION
  Report Type: Spontaneous
  Country: US (occurrence: US)
  Receive Date: 20200907
  Receipt Date: 20201229
  Transmission Date: 20210113
  Serious: Yes (Other)
  Sender: FDA-Public Use
  Company Number: US-PFIZER INC-2019153353

PATIENT
  Sex: Female
  Weight: 49.9 kg

DRUGS (3)
  1. DILANTIN [Suspect]
     Active Substance: PHENYTOIN
     Indication: SEIZURE
     Dosage: 400 MG, DAILY
  2. DILANTIN [Suspect]
     Active Substance: PHENYTOIN
     Indication: BRAIN OPERATION
     Dosage: 300 MG, DAILY (100MG STRENGTH, LOWERED DOSE)
     Dates: start: 2001
  3. DILANTIN [Suspect]
     Active Substance: PHENYTOIN
     Indication: ARTERIOVENOUS MALFORMATION

REACTIONS (1)
  - Generalised tonic-clonic seizure [Recovered/Resolved]
